FAERS Safety Report 9500727 (Version 1)
Quarter: 2013Q1

REPORT INFORMATION
  Report Type: Spontaneous
  Country: US (occurrence: None)
  Receive Date: 20130115
  Receipt Date: 20130115
  Transmission Date: 20140127
  Serious: Yes (Other)
  Sender: FDA-Public Use
  Company Number: 3002808337-2012-00001

PATIENT
  Age: 80 Year
  Sex: Female

DRUGS (1)
  1. TERUFLEX BLOOD BAG SYSTEM ANTICOAGULANT CITRATE PHOSPHATE DEXTROSE (CPD) AND OPTISOL RED CELL PRESERVATIVE [Suspect]
     Indication: BLOOD PRODUCT TRANSFUSION
     Dosage: 1 UNIT AS-5 RBC
     Dates: start: 20120119

REACTIONS (6)
  - Pyrexia [None]
  - Bacterial infection [None]
  - Sepsis [None]
  - Transmission of an infectious agent via product [None]
  - Staphylococcal infection [None]
  - Product contamination microbial [None]
